FAERS Safety Report 12326764 (Version 1)
Quarter: 2016Q2

REPORT INFORMATION
  Report Type: Spontaneous
  Country: US (occurrence: US)
  Receive Date: 20160503
  Receipt Date: 20160503
  Transmission Date: 20160815
  Serious: No
  Sender: FDA-Public Use
  Company Number: US-ASTRAZENECA-2016SE35387

PATIENT
  Sex: Female
  Weight: 10 kg

DRUGS (1)
  1. SYNAGIS [Suspect]
     Active Substance: PALIVIZUMAB
     Indication: RESPIRATORY SYNCYTIAL VIRUS INFECTION
     Route: 030

REACTIONS (4)
  - Malaise [Recovered/Resolved]
  - Diarrhoea [Unknown]
  - Pharyngeal oedema [Unknown]
  - Croup infectious [Unknown]
